FAERS Safety Report 9584803 (Version 2)
Quarter: 2013Q4

REPORT INFORMATION
  Report Type: Spontaneous
  Country: US (occurrence: US)
  Receive Date: 20131002
  Receipt Date: 20131002
  Transmission Date: 20140711
  Serious: No
  Sender: FDA-Public Use
  Company Number: US-AMGEN-USASP2013051726

PATIENT
  Age: 45 Year
  Sex: Male
  Weight: 72.56 kg

DRUGS (6)
  1. ENBREL [Suspect]
     Indication: PRODUCT USED FOR UNKNOWN INDICATION
     Dosage: 50 MG, 2 TIMES/WK
     Route: 058
     Dates: start: 20130605
  2. LIDEX-E [Concomitant]
     Dosage: 0.05 %, UNK
  3. TAZORAC [Concomitant]
     Dosage: 0.1 %, UNK
  4. NEXIUM                             /01479302/ [Concomitant]
     Dosage: 40 MG, UNK
  5. MULTIVITAMINS, PLAIN [Concomitant]
     Dosage: UNK
  6. ECHINACEA PURPUREA [Concomitant]
     Dosage: 125 MG, UNK

REACTIONS (3)
  - Condition aggravated [Recovered/Resolved]
  - Back pain [Unknown]
  - Sinusitis [Recovered/Resolved]
